FAERS Safety Report 23664530 (Version 1)
Quarter: 2024Q1

REPORT INFORMATION
  Report Type: Spontaneous
  Country: US (occurrence: None)
  Receive Date: 20240322
  Receipt Date: 20240322
  Transmission Date: 20240410
  Serious: Yes (Other)
  Sender: FDA-Public Use
  Company Number: None

PATIENT
  Age: 63 Year
  Sex: Female
  Weight: 56.25 kg

DRUGS (10)
  1. CYCLOBENZAPRINE\KETOPROFEN\LIDOCAINE [Suspect]
     Active Substance: CYCLOBENZAPRINE\KETOPROFEN\LIDOCAINE
     Indication: Back pain
     Dosage: 1 THIN LAYER  TWICE A DAY TOPICAL
     Route: 061
     Dates: start: 20240309, end: 20240309
  2. CYCLOBENZAPRINE\KETOPROFEN\LIDOCAINE [Suspect]
     Active Substance: CYCLOBENZAPRINE\KETOPROFEN\LIDOCAINE
     Indication: Neck pain
  3. CYCLOBENZAPRINE\KETOPROFEN\LIDOCAINE [Suspect]
     Active Substance: CYCLOBENZAPRINE\KETOPROFEN\LIDOCAINE
     Indication: Arthralgia
  4. estradiol/projesterone compound cream [Concomitant]
  5. ATIVAN [Concomitant]
     Active Substance: LORAZEPAM
  6. ADVIL [Concomitant]
     Active Substance: IBUPROFEN
  7. magnesium cream topical [Concomitant]
  8. VITAMIN C [Concomitant]
     Active Substance: ASCORBIC ACID
  9. VITAMIN D [Concomitant]
     Active Substance: VITAMIN D NOS
  10. ZINC [Concomitant]
     Active Substance: PYRITHIONE ZINC\ZINC\ZINC CHLORIDE

REACTIONS (6)
  - Dizziness [None]
  - Nausea [None]
  - Dizziness [None]
  - Vertigo [None]
  - Insomnia [None]
  - Product formulation issue [None]

NARRATIVE: CASE EVENT DATE: 20240309
